FAERS Safety Report 4484916-6 (Version None)
Quarter: 2004Q3

REPORT INFORMATION
  Report Type: 
  Country: None (occurrence: None)
  Receive Date: 20040921
  Receipt Date: 20030811
  Transmission Date: 20050211
  Serious: Yes (Hospitalization)
  Sender: FDA-Public Use
  Company Number: 163-20785-03080293

PATIENT
  Age: 78 Year
  Sex: Female

DRUGS (1)
  1. THALOMID [Suspect]
     Indication: RENAL CANCER METASTATIC
     Dosage: 100 MG, DAILY, ORAL
     Route: 048
     Dates: start: 20030521, end: 20030620

REACTIONS (1)
  - BRADYCARDIA [None]
